FAERS Safety Report 5628783-3 (Version None)
Quarter: 2008Q1

REPORT INFORMATION
  Report Type: 
  Country: None (occurrence: None)
  Receive Date: 20080215
  Receipt Date: 20080206
  Transmission Date: 20080703
  Serious: Yes (Other)
  Sender: FDA-Public Use
  Company Number: JP-PFIZER INC-2008012831

PATIENT
  Age: 52 Year
  Sex: Female

DRUGS (6)
  1. LINEZOLID [Suspect]
     Indication: SEPSIS
  2. CLINDAMYCIN HYDROCHLORIDE [Suspect]
     Indication: SEPSIS
  3. PIPERACILLIN [Suspect]
  4. PENICILLIN G [Suspect]
  5. CIPROFLOXACIN [Suspect]
  6. MEROPENEM [Suspect]

REACTIONS (1)
  - AUTOIMMUNE THROMBOCYTOPENIA [None]
